FAERS Safety Report 8106501-7 (Version None)
Quarter: 2012Q1

REPORT INFORMATION
  Report Type: 
  Country: None (occurrence: None)
  Receive Date: 20120131
  Receipt Date: 20120124
  Transmission Date: 20120608
  Serious: Yes (Hospitalization, Other)
  Sender: FDA-Public Use
  Company Number: 2010SP006063

PATIENT
  Age: 40 Year
  Sex: Female
  Weight: 81.6475 kg

DRUGS (15)
  1. HYDROCHLOROTHIAZIDE [Concomitant]
  2. IBUPROFEN [Concomitant]
  3. NUVARING [Suspect]
     Indication: UTERINE LEIOMYOMA
     Dates: start: 20071201, end: 20080622
  4. COUMADIN [Suspect]
     Indication: PULMONARY EMBOLISM
     Dosage: 5 MG; QD
     Dates: start: 20080601
  5. ARMODAFINIL [Concomitant]
  6. KEPPRA [Concomitant]
  7. FLONASE [Concomitant]
  8. SINGULAIR [Concomitant]
  9. ANAPROX DS [Concomitant]
  10. BACTRIM DS [Concomitant]
  11. FLAGYL [Concomitant]
  12. VALIUM [Concomitant]
  13. BENAZEPRIL HYDROCHLORIDE AND HYDROCHLOROTHIAZIDE [Concomitant]
  14. CYMBALTA [Concomitant]
  15. TUSSIONEX [Concomitant]

REACTIONS (58)
  - HYPOKALAEMIA [None]
  - OEDEMA PERIPHERAL [None]
  - EXTRASYSTOLES [None]
  - HEART RATE DECREASED [None]
  - PRODUCTIVE COUGH [None]
  - HYPERTENSION [None]
  - ANTIBODY TEST POSITIVE [None]
  - LOSS OF CONSCIOUSNESS [None]
  - HEAD INJURY [None]
  - NAUSEA [None]
  - BACK PAIN [None]
  - MULTIPLE SCLEROSIS [None]
  - EMOTIONAL DISORDER [None]
  - DYSFUNCTIONAL UTERINE BLEEDING [None]
  - RHINITIS ALLERGIC [None]
  - UPPER RESPIRATORY TRACT INFECTION [None]
  - MIGRAINE [None]
  - VOMITING [None]
  - PIRIFORMIS SYNDROME [None]
  - BURSITIS [None]
  - CYSTITIS [None]
  - IMMOBILE [None]
  - IRON DEFICIENCY ANAEMIA [None]
  - ANXIETY [None]
  - FIBROMYALGIA [None]
  - CONDITION AGGRAVATED [None]
  - NECK PAIN [None]
  - CONTUSION [None]
  - URINARY TRACT INFECTION [None]
  - CLAUSTROPHOBIA [None]
  - DEMYELINATION [None]
  - NUCLEAR MAGNETIC RESONANCE IMAGING BRAIN ABNORMAL [None]
  - EPSTEIN-BARR VIRUS TEST POSITIVE [None]
  - ROAD TRAFFIC ACCIDENT [None]
  - HAEMATOCHEZIA [None]
  - SINUS TACHYCARDIA [None]
  - THROMBOSIS [None]
  - DIZZINESS [None]
  - VERTIGO [None]
  - PYREXIA [None]
  - NEUROPATHY PERIPHERAL [None]
  - GASTROOESOPHAGEAL REFLUX DISEASE [None]
  - CONVULSION [None]
  - POST-TRAUMATIC STRESS DISORDER [None]
  - NASAL OBSTRUCTION [None]
  - VULVOVAGINAL MYCOTIC INFECTION [None]
  - ABDOMINAL PAIN LOWER [None]
  - BURNING SENSATION [None]
  - PROTEINURIA [None]
  - INSOMNIA [None]
  - PULMONARY EMBOLISM [None]
  - OVARIAN CYST [None]
  - MENORRHAGIA [None]
  - PARAESTHESIA [None]
  - HYPERVENTILATION [None]
  - ANTINUCLEAR ANTIBODY POSITIVE [None]
  - ARTHRALGIA [None]
  - CARPAL TUNNEL SYNDROME [None]
